FAERS Safety Report 12946707 (Version 1)
Quarter: 2016Q4

REPORT INFORMATION
  Report Type: Spontaneous
  Country: US (occurrence: US)
  Receive Date: 20161116
  Receipt Date: 20161116
  Transmission Date: 20170207
  Serious: No
  Sender: FDA-Public Use
  Company Number: US-009507513-1611USA005407

PATIENT

DRUGS (1)
  1. PROSCAR [Suspect]
     Active Substance: FINASTERIDE

REACTIONS (1)
  - Dysphagia [Unknown]
